FAERS Safety Report 12310921 (Version 1)
Quarter: 2016Q2

REPORT INFORMATION
  Report Type: Spontaneous
  Country: US (occurrence: US)
  Receive Date: 20160427
  Receipt Date: 20160427
  Transmission Date: 20160815
  Serious: Yes (Other)
  Sender: FDA-Public Use
  Company Number: US-LPDUSPRD-20160351

PATIENT
  Age: 25 Year
  Sex: Male

DRUGS (2)
  1. PHENYLEPHRINE HCL [Suspect]
     Active Substance: PHENYLEPHRINE HYDROCHLORIDE
     Dosage: TOTAL DOSE 16.2 MG IN 12 HOURS
     Route: 008
  2. BUPIVICAINE 1% [Concomitant]
     Dosage: 12ML/HR
     Route: 008

REACTIONS (2)
  - Hypertension [Unknown]
  - Wrong drug administered [Unknown]
